FAERS Safety Report 20128515 (Version 3)
Quarter: 2022Q1

REPORT INFORMATION
  Report Type: Spontaneous
  Country: US (occurrence: US)
  Receive Date: 20211130
  Receipt Date: 20220225
  Transmission Date: 20220423
  Serious: No
  Sender: FDA-Public Use
  Company Number: US-BoehringerIngelheim-2021-BI-140909

PATIENT
  Sex: Male

DRUGS (1)
  1. COMBIVENT RESPIMAT [Suspect]
     Active Substance: ALBUTEROL SULFATE\IPRATROPIUM BROMIDE
     Indication: Product used for unknown indication
     Dosage: 1 PUFF 4 TIMES DAILY;
     Dates: start: 2009

REACTIONS (2)
  - Dyspnoea [Not Recovered/Not Resolved]
  - Product quality issue [Not Recovered/Not Resolved]

NARRATIVE: CASE EVENT DATE: 20211129
